FAERS Safety Report 6174980-0 (Version None)
Quarter: 2009Q2

REPORT INFORMATION
  Report Type: 
  Country: None (occurrence: None)
  Receive Date: 20090430
  Receipt Date: 20081103
  Transmission Date: 20091009
  Serious: No
  Sender: FDA-Public Use
  Company Number: US-ASTRAZENECA-2008UW24586

PATIENT
  Age: 52 Year
  Sex: Female

DRUGS (2)
  1. NEXIUM [Suspect]
     Route: 048
  2. ALL KINDS OF MEDICATIONS [Concomitant]

REACTIONS (1)
  - VOCAL CORD DISORDER [None]
